FAERS Safety Report 8475028-5 (Version None)
Quarter: 2012Q2

REPORT INFORMATION
  Report Type: 
  Country: None (occurrence: None)
  Receive Date: 20120628
  Receipt Date: 20120619
  Transmission Date: 20120825
  Serious: Yes (Other)
  Sender: FDA-Public Use
  Company Number: SE-JNJFOC-20120609865

PATIENT
  Age: 43 Year
  Sex: Female

DRUGS (1)
  1. SIMPONI [Suspect]
     Indication: PSORIATIC ARTHROPATHY
     Route: 058
     Dates: start: 20110616, end: 20110915

REACTIONS (3)
  - DEPRESSION [None]
  - PSORIATIC ARTHROPATHY [None]
  - ANXIETY [None]
